FAERS Safety Report 24538135 (Version 2)
Quarter: 2025Q3

REPORT INFORMATION
  Report Type: Spontaneous
  Country: JP (occurrence: JP)
  Receive Date: 20241023
  Receipt Date: 20250802
  Transmission Date: 20251020
  Serious: Yes (Other)
  Sender: ALEXION PHARMACEUTICALS
  Company Number: JP-ASTRAZENECA-240100329_012620_P_1

PATIENT
  Age: 69 Year
  Sex: Female

DRUGS (6)
  1. FASLODEX [Suspect]
     Active Substance: FULVESTRANT
     Indication: Breast cancer
  2. FASLODEX [Suspect]
     Active Substance: FULVESTRANT
  3. TRUQAP [Suspect]
     Active Substance: CAPIVASERTIB
     Indication: Breast cancer
     Dosage: ON A 4-DAYS-ON, 3-DAYS-OFF SCHEDULE
     Dates: start: 20240712
  4. TRUQAP [Suspect]
     Active Substance: CAPIVASERTIB
  5. TRUQAP [Suspect]
     Active Substance: CAPIVASERTIB
     Dosage: 4-DAYS-ON, 3-DAYS-OFF SCHEDULE
     Dates: start: 20240807, end: 20240828
  6. TRUQAP [Suspect]
     Active Substance: CAPIVASERTIB
     Dosage: 4-DAYS-ON, 3-DAYS-OFF SCHEDULE

REACTIONS (2)
  - Renal impairment [Unknown]
  - Malaise [Recovered/Resolved]
